FAERS Safety Report 13262477 (Version 1)
Quarter: 2017Q1

REPORT INFORMATION
  Report Type: Spontaneous
  Country: BR (occurrence: BR)
  Receive Date: 20170223
  Receipt Date: 20170223
  Transmission Date: 20170428
  Serious: Yes (Other)
  Sender: FDA-Public Use
  Company Number: BR-BAXTER-2017BAX006813

PATIENT
  Age: 40 Year
  Sex: Female

DRUGS (1)
  1. MANITOL [Suspect]
     Active Substance: MANNITOL
     Indication: PRODUCT USED FOR UNKNOWN INDICATION
     Route: 065
     Dates: start: 201405

REACTIONS (5)
  - Carbohydrate metabolism disorder [Recovering/Resolving]
  - Balance disorder [Recovering/Resolving]
  - Vision blurred [Recovering/Resolving]
  - Hypoacusis [Recovering/Resolving]
  - Ear discomfort [Recovering/Resolving]

NARRATIVE: CASE EVENT DATE: 201405
